FAERS Safety Report 25126191 (Version 3)
Quarter: 2025Q2

REPORT INFORMATION
  Report Type: Report from Study
  Country: US (occurrence: US)
  Receive Date: 20250326
  Receipt Date: 20250529
  Transmission Date: 20250716
  Serious: Yes (Other)
  Sender: ABBVIE
  Company Number: US-ABBVIE-6193983

PATIENT
  Age: 76 Year
  Sex: Female

DRUGS (1)
  1. CREON [Suspect]
     Active Substance: PANCRELIPASE AMYLASE\PANCRELIPASE LIPASE\PANCRELIPASE PROTEASE
     Indication: Product used for unknown indication
     Route: 048
     Dates: start: 20250307

REACTIONS (5)
  - Chemotherapy [Unknown]
  - Radiotherapy [Unknown]
  - Diarrhoea [Unknown]
  - Product use complaint [Unknown]
  - Choking [Unknown]

NARRATIVE: CASE EVENT DATE: 20250101
